FAERS Safety Report 13427718 (Version 1)
Quarter: 2017Q2

REPORT INFORMATION
  Report Type: Spontaneous
  Country: GB (occurrence: GB)
  Receive Date: 20170411
  Receipt Date: 20170411
  Transmission Date: 20170830
  Serious: Yes (Other)
  Sender: FDA-Public Use
  Company Number: PHHY2017GB048891

PATIENT
  Age: 66 Year
  Sex: Male
  Weight: 80 kg

DRUGS (2)
  1. ROSUVASTATIN. [Suspect]
     Active Substance: ROSUVASTATIN
     Indication: HYPERCHOLESTEROLAEMIA
     Dosage: 10 MG, UNK
     Route: 048
     Dates: start: 20071211, end: 20080307
  2. SIMVASTATIN. [Suspect]
     Active Substance: SIMVASTATIN
     Indication: HYPERCHOLESTEROLAEMIA
     Dosage: 40 MG, UNK
     Route: 048
     Dates: start: 20070925, end: 20071211

REACTIONS (2)
  - Generalised tonic-clonic seizure [Not Recovered/Not Resolved]
  - Tremor [Not Recovered/Not Resolved]

NARRATIVE: CASE EVENT DATE: 200710
